FAERS Safety Report 21402796 (Version 1)
Quarter: 2022Q3

REPORT INFORMATION
  Report Type: Spontaneous
  Country: US (occurrence: None)
  Receive Date: 20220930
  Receipt Date: 20220930
  Transmission Date: 20221027
  Serious: Yes (unspecified)
  Sender: FDA-Public Use
  Company Number: None

PATIENT
  Age: 65 Year
  Sex: Male
  Weight: 77.3 kg

DRUGS (1)
  1. RUXIENCE [Suspect]
     Active Substance: RITUXIMAB-PVVR

REACTIONS (5)
  - Nausea [None]
  - Dysphonia [None]
  - Cough [None]
  - Body temperature increased [None]
  - Infusion related reaction [None]

NARRATIVE: CASE EVENT DATE: 20220823
